FAERS Safety Report 13304501 (Version 2)
Quarter: 2017Q1

REPORT INFORMATION
  Report Type: Spontaneous
  Country: GB (occurrence: GB)
  Receive Date: 20170308
  Receipt Date: 20170310
  Transmission Date: 20170428
  Serious: No
  Sender: FDA-Public Use
  Company Number: GB-CONCORDIA PHARMACEUTICALS INC.-GSH201703-001499

PATIENT
  Age: 67 Year
  Sex: Female

DRUGS (1)
  1. TRANYLCYPROMINE 10 MG TABLETS RISING [Suspect]
     Active Substance: TRANYLCYPROMINE

REACTIONS (1)
  - Asthenia [Unknown]
